FAERS Safety Report 4911976-8 (Version None)
Quarter: 2006Q1

REPORT INFORMATION
  Report Type: 
  Country: None (occurrence: None)
  Receive Date: 20060215
  Receipt Date: 20060207
  Transmission Date: 20060701
  Serious: Yes (Death, Hospitalization, Other)
  Sender: FDA-Public Use
  Company Number: PHBS2006DE02041

PATIENT
  Age: 36 Year
  Sex: Male

DRUGS (4)
  1. CYCLOSPORINE [Suspect]
     Indication: STEM CELL TRANSPLANT
     Route: 065
  2. METHOTREXATE [Suspect]
     Indication: STEM CELL TRANSPLANT
     Route: 065
  3. CYCLOPHOSPHAMIDE [Suspect]
     Indication: STEM CELL TRANSPLANT
     Route: 065
  4. IRRADIATION [Concomitant]
     Indication: STEM CELL TRANSPLANT
     Route: 065

REACTIONS (16)
  - ACUTE RESPIRATORY FAILURE [None]
  - ASPERGILLOSIS [None]
  - C-REACTIVE PROTEIN INCREASED [None]
  - CANDIDIASIS [None]
  - ENTEROCOCCAL SEPSIS [None]
  - FEBRILE NEUTROPENIA [None]
  - FUNGUS SEROLOGY TEST POSITIVE [None]
  - GRAFT VERSUS HOST DISEASE [None]
  - HEPATOTOXICITY [None]
  - LIFE SUPPORT [None]
  - LIVER FUNCTION TEST ABNORMAL [None]
  - LUNG INFILTRATION [None]
  - MULTI-ORGAN FAILURE [None]
  - ORGAN FAILURE [None]
  - STAPHYLOCOCCAL INFECTION [None]
  - TRACHEOSTOMY [None]
